FAERS Safety Report 11026796 (Version 2)
Quarter: 2015Q2

REPORT INFORMATION
  Report Type: Spontaneous
  Country: US (occurrence: US)
  Receive Date: 20150414
  Receipt Date: 20150525
  Transmission Date: 20150821
  Serious: No
  Sender: FDA-Public Use
  Company Number: US-JNJFOC-20121206705

PATIENT
  Sex: Female

DRUGS (2)
  1. LOESTRIN FE 1/20 [Suspect]
     Active Substance: ETHINYL ESTRADIOL\NORETHINDRONE ACETATE
     Indication: CONTRACEPTION
     Dosage: NORETHINDRONE ACETATE 1 MG/ ETHINYL ESTRADIOL 20 MCG
     Route: 048
  2. ORTHO TRI CYCLEN LO [Suspect]
     Active Substance: ETHINYL ESTRADIOL\NORGESTIMATE
     Indication: CONTRACEPTION
     Dosage: NORGESTIMATE (NGM) 180/215/250 MCG/ EE 25 MCG
     Route: 048

REACTIONS (2)
  - Vaginal haemorrhage [Unknown]
  - Metrorrhagia [Unknown]
